FAERS Safety Report 20813738 (Version 1)
Quarter: 2022Q2

REPORT INFORMATION
  Report Type: Spontaneous
  Country: US (occurrence: US)
  Receive Date: 20220511
  Receipt Date: 20220511
  Transmission Date: 20220721
  Serious: Yes (Death)
  Sender: FDA-Public Use
  Company Number: US-BTGSP-US-BTGSP-22-0049

PATIENT
  Age: 60 Year
  Sex: Male

DRUGS (1)
  1. CROFAB [Suspect]
     Active Substance: CROTALIDAE POLYVALENT IMMUNE FAB (OVINE)
     Indication: Snake bite
     Dosage: UNK
     Route: 065
     Dates: start: 2021

REACTIONS (2)
  - Thrombosis [Fatal]
  - Coagulopathy [Fatal]

NARRATIVE: CASE EVENT DATE: 20210101
